FAERS Safety Report 21955051 (Version 2)
Quarter: 2023Q1

REPORT INFORMATION
  Report Type: Report from Study
  Country: US (occurrence: US)
  Receive Date: 20230206
  Receipt Date: 20230219
  Transmission Date: 20230417
  Serious: Yes (Hospitalization)
  Sender: FDA-Public Use
  Company Number: US-UCBSA-2023004947

PATIENT
  Age: 62 Year
  Sex: Male

DRUGS (1)
  1. CERTOLIZUMAB PEGOL [Suspect]
     Active Substance: CERTOLIZUMAB PEGOL
     Indication: Rheumatoid arthritis
     Dosage: UNK
     Dates: start: 202112, end: 202112

REACTIONS (2)
  - Myocardial infarction [Recovered/Resolved]
  - Heart valve replacement [Recovered/Resolved]

NARRATIVE: CASE EVENT DATE: 20211224
